FAERS Safety Report 24249716 (Version 1)
Quarter: 2024Q3

REPORT INFORMATION
  Report Type: Spontaneous
  Country: CN (occurrence: CN)
  Receive Date: 20240826
  Receipt Date: 20240826
  Transmission Date: 20241016
  Serious: Yes (Other)
  Sender: ELI LILLY AND CO
  Company Number: CN-ELI_LILLY_AND_COMPANY-CN202408009680

PATIENT
  Age: 18 Year
  Sex: Female
  Weight: 60 kg

DRUGS (3)
  1. FLUOXETINE HYDROCHLORIDE [Suspect]
     Active Substance: FLUOXETINE HYDROCHLORIDE
     Indication: Intentional self-injury
     Dosage: 5 DOSAGE FORM, SINGLE
     Route: 048
     Dates: start: 20231122, end: 20231122
  2. ARIPIPRAZOLE [Suspect]
     Active Substance: ARIPIPRAZOLE
     Indication: Intentional self-injury
     Dosage: 12 DOSAGE FORM, SINGLE (TABLETS)
     Route: 048
     Dates: start: 20231122, end: 20231122
  3. LITHIUM CARBONATE [Suspect]
     Active Substance: LITHIUM CARBONATE
     Indication: Intentional self-injury
     Dosage: 10 DOSAGE FORM, SINGLE (TABLETS)
     Route: 048
     Dates: start: 20231122, end: 20231122

REACTIONS (2)
  - Toxicity to various agents [Recovering/Resolving]
  - Intentional overdose [Recovering/Resolving]

NARRATIVE: CASE EVENT DATE: 20231122
